FAERS Safety Report 6730146-4 (Version None)
Quarter: 2010Q2

REPORT INFORMATION
  Report Type: 
  Country: None (occurrence: None)
  Receive Date: 20100512
  Receipt Date: 20100325
  Transmission Date: 20101027
  Serious: No
  Sender: FDA-Public Use
  Company Number: 1000012758

PATIENT
  Sex: Female

DRUGS (2)
  1. SAVELLA [Suspect]
     Indication: FIBROMYALGIA
     Dosage: 12.5 MG (12.5 MG, 1 IN 1 D), ORAL (2 IN 1 D), ORAL
     Route: 048
     Dates: start: 20100101, end: 20100101
  2. SAVELLA [Suspect]
     Indication: FIBROMYALGIA
     Dosage: 12.5 MG (12.5 MG, 1 IN 1 D), ORAL (2 IN 1 D), ORAL
     Route: 048
     Dates: start: 20100101, end: 20100101

REACTIONS (1)
  - VAGINAL HAEMORRHAGE [None]
